FAERS Safety Report 6786534-3 (Version None)
Quarter: 2010Q2

REPORT INFORMATION
  Report Type: 
  Country: None (occurrence: None)
  Receive Date: 20100623
  Receipt Date: 20100330
  Transmission Date: 20101027
  Serious: No
  Sender: FDA-Public Use
  Company Number: US-TYCO HEALTHCARE/MALLINCKRODT-T201000938

PATIENT
  Age: 64 Year
  Sex: Male

DRUGS (2)
  1. TECHNESCAN MAG3 [Suspect]
     Dosage: UNK UNK, SINGLE
     Dates: start: 20100330, end: 20100330
  2. ULTRA-TECHNEKOW [Concomitant]
     Dosage: UNK UNK, SINGLE
     Dates: start: 20100330, end: 20100330

REACTIONS (1)
  - DRUG INEFFECTIVE [None]
